FAERS Safety Report 12386266 (Version 1)
Quarter: 2016Q2

REPORT INFORMATION
  Report Type: Report from Study
  Country: US (occurrence: US)
  Receive Date: 20160519
  Receipt Date: 20160519
  Transmission Date: 20160815
  Serious: Yes (Hospitalization, Other)
  Sender: FDA-Public Use
  Company Number: US-AMGEN-USASL2016063312

PATIENT
  Sex: Male

DRUGS (2)
  1. COUMADINE [Concomitant]
     Active Substance: WARFARIN SODIUM
     Dosage: UNK
  2. ENBREL [Suspect]
     Active Substance: ETANERCEPT
     Indication: PRODUCT USED FOR UNKNOWN INDICATION
     Dosage: UNK
     Route: 065

REACTIONS (6)
  - Gait disturbance [Unknown]
  - Pulmonary embolism [Unknown]
  - Spinal fusion surgery [Unknown]
  - Condition aggravated [Unknown]
  - Tachycardia [Unknown]
  - Wound secretion [Unknown]

NARRATIVE: CASE EVENT DATE: 2016
